FAERS Safety Report 8416799-3 (Version None)
Quarter: 2012Q2

REPORT INFORMATION
  Report Type: 
  Country: None (occurrence: None)
  Receive Date: 20120606
  Receipt Date: 20120531
  Transmission Date: 20120825
  Serious: Yes (Hospitalization, Other)
  Sender: FDA-Public Use
  Company Number: US-MERCK-0907USA00902

PATIENT
  Age: 71 Year
  Sex: Female
  Weight: 71 kg

DRUGS (5)
  1. FOSAMAX [Suspect]
     Route: 048
     Dates: start: 20060101
  2. FOSAMAX [Suspect]
     Route: 048
     Dates: start: 20091101, end: 20100501
  3. FOSAMAX [Suspect]
     Indication: OSTEOPOROSIS
     Route: 048
     Dates: start: 20071001, end: 20081001
  4. FOSAMAX [Suspect]
     Route: 048
     Dates: start: 20080417
  5. FOSAMAX [Suspect]
     Route: 048
     Dates: start: 20090914

REACTIONS (77)
  - DRY MOUTH [None]
  - DRUG HYPERSENSITIVITY [None]
  - CONTUSION [None]
  - RENAL MASS [None]
  - WEIGHT DECREASED [None]
  - LACUNAR INFARCTION [None]
  - GINGIVAL INFECTION [None]
  - ANAEMIA [None]
  - SQUAMOUS CELL CARCINOMA [None]
  - SEPSIS [None]
  - FALL [None]
  - SCOLIOSIS [None]
  - OSTEONECROSIS OF JAW [None]
  - SUBCUTANEOUS ABSCESS [None]
  - DENTAL CARIES [None]
  - BURSITIS [None]
  - SOMNOLENCE [None]
  - HISTRIONIC PERSONALITY DISORDER [None]
  - ORAL INFECTION [None]
  - LYMPHADENOPATHY [None]
  - DECREASED APPETITE [None]
  - ANXIETY [None]
  - OSTEOARTHRITIS [None]
  - PRESSURE OF SPEECH [None]
  - HYPERTENSION [None]
  - HAEMORRHAGIC DISORDER [None]
  - GINGIVAL ABSCESS [None]
  - EYE DISORDER [None]
  - DEPRESSION [None]
  - BIPOLAR DISORDER [None]
  - DEHYDRATION [None]
  - FAILURE TO THRIVE [None]
  - ARTHRALGIA [None]
  - OESOPHAGEAL DISORDER [None]
  - URINARY TRACT INFECTION [None]
  - SENSORY LOSS [None]
  - ACARODERMATITIS [None]
  - JOINT INJURY [None]
  - MALAISE [None]
  - MASTICATION DISORDER [None]
  - BREAST CANCER [None]
  - TREATMENT NONCOMPLIANCE [None]
  - CEREBROVASCULAR ACCIDENT [None]
  - PYELONEPHRITIS [None]
  - OSTEONECROSIS [None]
  - CORONARY ARTERY DISEASE [None]
  - PRURITUS GENERALISED [None]
  - TREMOR [None]
  - IMPAIRED HEALING [None]
  - HEART RATE IRREGULAR [None]
  - HEART RATE ABNORMAL [None]
  - HEADACHE [None]
  - HEAD DISCOMFORT [None]
  - BLOOD CHOLESTEROL INCREASED [None]
  - EXOSTOSIS [None]
  - ADVERSE DRUG REACTION [None]
  - MENTAL DISORDER [None]
  - ABSCESS [None]
  - NEPHROLITHIASIS [None]
  - INSOMNIA [None]
  - EATING DISORDER [None]
  - DIARRHOEA [None]
  - PAIN IN EXTREMITY [None]
  - TOOTH DISORDER [None]
  - SWELLING FACE [None]
  - SKIN LESION [None]
  - LIP PAIN [None]
  - GINGIVITIS [None]
  - GINGIVAL DISORDER [None]
  - MENTAL STATUS CHANGES [None]
  - BODY HEIGHT DECREASED [None]
  - EAR PAIN [None]
  - POLLAKIURIA [None]
  - HYPERLIPIDAEMIA [None]
  - GRANDIOSITY [None]
  - BREAST MASS [None]
  - ANXIETY DISORDER [None]
